FAERS Safety Report 7530662-1 (Version None)
Quarter: 2011Q2

REPORT INFORMATION
  Report Type: 
  Country: None (occurrence: None)
  Receive Date: 20110607
  Receipt Date: 20110528
  Transmission Date: 20111010
  Serious: Yes (Hospitalization)
  Sender: FDA-Public Use
  Company Number: US-BAXTER-2011BH017822

PATIENT
  Sex: Male

DRUGS (1)
  1. ARALAST [Suspect]
     Indication: PRODUCT USED FOR UNKNOWN INDICATION
     Route: 065

REACTIONS (6)
  - URTICARIA [None]
  - VOMITING [None]
  - PRURITUS [None]
  - VIRAL INFECTION [None]
  - CYANOSIS [None]
  - FATIGUE [None]
